FAERS Safety Report 9639380 (Version 22)
Quarter: 2015Q2

REPORT INFORMATION
  Report Type: Report from Study
  Country: CA (occurrence: CA)
  Receive Date: 20131022
  Receipt Date: 20150504
  Transmission Date: 20150821
  Serious: Yes (Hospitalization, Other)
  Sender: FDA-Public Use
  Company Number: CA-ROCHE-1250600

PATIENT
  Age: 53 Year
  Sex: Female
  Weight: 92 kg

DRUGS (19)
  1. IBUPROFEN. [Concomitant]
     Active Substance: IBUPROFEN
  2. DOMPERIDONE [Concomitant]
     Active Substance: DOMPERIDONE
  3. SALBUTAMOL [Concomitant]
     Active Substance: ALBUTEROL
  4. ATIVAN [Concomitant]
     Active Substance: LORAZEPAM
  5. ACETAMINOPHEN. [Concomitant]
     Active Substance: ACETAMINOPHEN
  6. SENNOSIDE [Concomitant]
     Active Substance: SENNOSIDES
  7. ACTEMRA [Suspect]
     Active Substance: TOCILIZUMAB
     Indication: RHEUMATOID ARTHRITIS
     Route: 042
     Dates: start: 20130617
  8. ALENDRONATE [Concomitant]
     Active Substance: ALENDRONATE SODIUM
  9. NEXIUM [Concomitant]
     Active Substance: ESOMEPRAZOLE MAGNESIUM
  10. BUPROPION [Concomitant]
     Active Substance: BUPROPION
  11. VENTOLIN [Concomitant]
     Active Substance: ALBUTEROL SULFATE
  12. HYDROMORPH CONTIN [Concomitant]
     Active Substance: HYDROMORPHONE
  13. ASA [Concomitant]
     Active Substance: ASPIRIN
  14. SPIRIVA [Concomitant]
     Active Substance: TIOTROPIUM BROMIDE MONOHYDRATE
  15. ACTEMRA [Suspect]
     Active Substance: TOCILIZUMAB
     Route: 042
     Dates: start: 20140203
  16. ATORVASTATIN [Concomitant]
     Active Substance: ATORVASTATIN
  17. PROMETRIUM [Concomitant]
     Active Substance: PROGESTERONE
  18. ACTEMRA [Suspect]
     Active Substance: TOCILIZUMAB
     Route: 042
     Dates: start: 20130813
  19. PREDNISONE. [Concomitant]
     Active Substance: PREDNISONE

REACTIONS (18)
  - Osteomyelitis [Unknown]
  - Localised infection [Unknown]
  - Arthralgia [Not Recovered/Not Resolved]
  - Arthralgia [Not Recovered/Not Resolved]
  - Skin ulcer [Unknown]
  - Skin ulcer [Unknown]
  - Restlessness [Recovering/Resolving]
  - No therapeutic response [Unknown]
  - Fluid retention [Unknown]
  - Arthralgia [Unknown]
  - Infection [Unknown]
  - Oedema peripheral [Recovering/Resolving]
  - Arthritis [Not Recovered/Not Resolved]
  - Impaired healing [Not Recovered/Not Resolved]
  - Infected skin ulcer [Unknown]
  - Localised infection [Recovering/Resolving]
  - Infected skin ulcer [Not Recovered/Not Resolved]
  - Weight increased [Unknown]

NARRATIVE: CASE EVENT DATE: 20130710
